FAERS Safety Report 18414569 (Version 1)
Quarter: 2020Q4

REPORT INFORMATION
  Report Type: Spontaneous
  Country: US (occurrence: US)
  Receive Date: 20201022
  Receipt Date: 20201022
  Transmission Date: 20210114
  Serious: No
  Sender: FDA-Public Use
  Company Number: US-009507513-2009USA008663

PATIENT
  Age: 39 Year
  Sex: Male

DRUGS (6)
  1. NOXAFIL [Suspect]
     Active Substance: POSACONAZOLE
     Indication: CUTANEOUS MUCORMYCOSIS
     Dosage: 300 MG, 2? DAILY
     Route: 042
  2. NOXAFIL [Suspect]
     Active Substance: POSACONAZOLE
     Indication: MUCORMYCOSIS
  3. CYCLOSPORINE. [Concomitant]
     Active Substance: CYCLOSPORINE
     Dosage: REDUCE TO 25 MG 2? DAILY
  4. CYCLOSPORINE. [Concomitant]
     Active Substance: CYCLOSPORINE
     Route: 048
  5. NOXAFIL [Suspect]
     Active Substance: POSACONAZOLE
     Indication: CANDIDA INFECTION
  6. AMPHOTERICIN B. [Concomitant]
     Active Substance: AMPHOTERICIN B
     Indication: ANTIFUNGAL TREATMENT
     Dosage: 5 MILLIGRAM/KILOGRAM
     Route: 042

REACTIONS (2)
  - Product use in unapproved indication [Unknown]
  - Inappropriate schedule of product administration [Unknown]
